FAERS Safety Report 12167818 (Version 1)
Quarter: 2016Q1

REPORT INFORMATION
  Report Type: Spontaneous
  Country: US (occurrence: None)
  Receive Date: 20160309
  Receipt Date: 20160309
  Transmission Date: 20160526
  Serious: Yes (Other)
  Sender: FDA-Public Use
  Company Number: None

PATIENT
  Age: 57 Year
  Sex: Female
  Weight: 70.31 kg

DRUGS (5)
  1. MYLOXICAM [Concomitant]
  2. CELECOXIB. [Concomitant]
     Active Substance: CELECOXIB
  3. HARVONI [Concomitant]
     Active Substance: LEDIPASVIR\SOFOSBUVIR
  4. CULTURELL [Concomitant]
  5. CELECOXIB 200 MG CAPSULE  GENERIC FOR CELEBREX [Suspect]
     Active Substance: CELECOXIB
     Indication: ARTHRITIS
     Dosage: 200 45 ALTER. EVERY OTHER DAY MOUTH
     Route: 048
     Dates: start: 20160202

REACTIONS (6)
  - Drug ineffective [None]
  - Condition aggravated [None]
  - Pain in extremity [None]
  - Product substitution issue [None]
  - Arthralgia [None]
  - Swelling [None]
